FAERS Safety Report 5628364-1 (Version None)
Quarter: 2008Q1

REPORT INFORMATION
  Report Type: 
  Country: None (occurrence: None)
  Receive Date: 20080215
  Receipt Date: 20080205
  Transmission Date: 20080703
  Serious: Yes (Death)
  Sender: FDA-Public Use
  Company Number: PH-ABBOTT-08P-128-0437416-00

PATIENT
  Age: 73 Year
  Sex: Female

DRUGS (7)
  1. NIASPAN [Suspect]
     Indication: DRUG USE FOR UNKNOWN INDICATION
     Route: 048
     Dates: start: 20060310, end: 20060516
  2. TELMISARTAN [Concomitant]
     Indication: DRUG USE FOR UNKNOWN INDICATION
     Dates: start: 20060130, end: 20060517
  3. HYDROCHLOROTHIAZIDE [Concomitant]
     Indication: DRUG USE FOR UNKNOWN INDICATION
     Dates: start: 20060130, end: 20060517
  4. VERAPAMIL [Concomitant]
     Indication: DRUG USE FOR UNKNOWN INDICATION
     Dates: start: 20060130, end: 20060517
  5. HEPARIN SODIUM [Concomitant]
     Indication: DRUG USE FOR UNKNOWN INDICATION
     Dates: start: 20060130, end: 20060517
  6. INSULIN HUMAN [Concomitant]
     Indication: DIABETES MELLITUS
     Dates: start: 20060130, end: 20060517
  7. INSULIN HUMAN [Concomitant]
     Dates: start: 20060130, end: 20060517

REACTIONS (1)
  - DIABETIC NEPHROPATHY [None]
